FAERS Safety Report 5882658-3 (Version None)
Quarter: 2008Q3

REPORT INFORMATION
  Report Type: 
  Country: None (occurrence: None)
  Receive Date: 20080913
  Receipt Date: 20080812
  Transmission Date: 20090109
  Serious: No
  Sender: FDA-Public Use
  Company Number: US-ABBOTT-08P-163-0470179-00

PATIENT
  Sex: Female
  Weight: 53.118 kg

DRUGS (8)
  1. HUMIRA [Suspect]
     Indication: COLITIS ULCERATIVE
     Dosage: LOADING DOSE
     Route: 058
     Dates: start: 20080715, end: 20080715
  2. HUMIRA [Suspect]
     Route: 058
  3. HUMIRA [Suspect]
     Route: 058
  4. MESALAMINE [Concomitant]
     Indication: COLITIS ULCERATIVE
     Route: 048
     Dates: start: 19980101
  5. PROBIOTIC 4Q2 [Concomitant]
     Indication: PHYTOTHERAPY
     Route: 048
     Dates: start: 20070101
  6. MULTI-VITAMIN [Concomitant]
     Indication: VITAMIN SUPPLEMENTATION
     Route: 048
     Dates: start: 20060101
  7. NICOTINAM. W/PYRIDOXI. HCL/RIBOFL./THIAM. HCL [Concomitant]
     Indication: VITAMIN SUPPLEMENTATION
     Route: 048
  8. HYBRIN [Concomitant]
     Indication: VITAMIN SUPPLEMENTATION
     Route: 048

REACTIONS (2)
  - ACCIDENTAL EXPOSURE [None]
  - INJECTION SITE IRRITATION [None]
